FAERS Safety Report 22731688 (Version 2)
Quarter: 2024Q2

REPORT INFORMATION
  Report Type: Spontaneous
  Country: FR (occurrence: FR)
  Receive Date: 20230720
  Receipt Date: 20240402
  Transmission Date: 20240716
  Serious: Yes (Hospitalization, Other)
  Sender: FDA-Public Use
  Company Number: FR-PFIZER INC-PV202300125251

PATIENT
  Age: 13 Year
  Weight: 35 kg

DRUGS (5)
  1. OXBRYTA [Suspect]
     Active Substance: VOXELOTOR
     Indication: Haemolytic anaemia
     Dosage: 1500 MG, DAILY
     Route: 048
     Dates: start: 2022
  2. MORPHINE [Concomitant]
     Active Substance: MORPHINE
     Indication: Analgesic therapy
  3. ACUPAN [Concomitant]
     Active Substance: NEFOPAM HYDROCHLORIDE
     Indication: Analgesic therapy
  4. AZITHROMYCIN [Concomitant]
     Active Substance: AZITHROMYCIN
     Indication: Antibiotic therapy
  5. SIKLOS [Concomitant]
     Active Substance: HYDROXYUREA

REACTIONS (11)
  - Sickle cell anaemia with crisis [Unknown]
  - Acute chest syndrome [Unknown]
  - Haemoglobin decreased [Unknown]
  - Blood lactate dehydrogenase increased [Unknown]
  - Musculoskeletal chest pain [Unknown]
  - Costochondritis [Unknown]
  - Asthenia [Recovering/Resolving]
  - Blood bilirubin increased [Recovering/Resolving]
  - Reticulocyte count increased [Unknown]
  - Aspartate aminotransferase increased [Unknown]
  - Haematocrit decreased [Unknown]

NARRATIVE: CASE EVENT DATE: 20220101
